FAERS Safety Report 7529178-8 (Version None)
Quarter: 2011Q2

REPORT INFORMATION
  Report Type: 
  Country: None (occurrence: None)
  Receive Date: 20110607
  Receipt Date: 20110530
  Transmission Date: 20111010
  Serious: Yes (Death, Hospitalization, Other)
  Sender: FDA-Public Use
  Company Number: CA-ROCHE-754424

PATIENT
  Sex: Male
  Weight: 250.8 kg

DRUGS (14)
  1. CRESTOR [Concomitant]
  2. DILTIAZEM [Concomitant]
     Route: 048
  3. ASPIRIN [Concomitant]
  4. BEVACIZUMAB [Suspect]
     Indication: GLIOBLASTOMA
     Route: 042
     Dates: start: 20101124, end: 20110131
  5. TEGRETOL [Concomitant]
  6. TEMOZOLOMIDE [Concomitant]
     Route: 048
  7. METFORMIN HCL [Concomitant]
  8. METHYLPREDNISOLONE [Concomitant]
     Dosage: FREQUENCY: ONCE
     Route: 042
     Dates: start: 20101221, end: 20101221
  9. RANITIDINE [Concomitant]
     Route: 048
  10. DEXAMETHASONE [Concomitant]
     Route: 048
  11. MAVIK [Concomitant]
  12. ZOPICLONE [Concomitant]
  13. BENADRYL [Concomitant]
     Dosage: FREQUENCY: ONCE
     Route: 048
     Dates: start: 20101221, end: 20101221
  14. TYLENOL-500 [Concomitant]
     Dosage: FREQUENCY: ONCE
     Route: 048
     Dates: start: 20101221, end: 20101221

REACTIONS (5)
  - DEATH [None]
  - PULMONARY THROMBOSIS [None]
  - DEEP VEIN THROMBOSIS [None]
  - NEOPLASM MALIGNANT [None]
  - PNEUMONIA [None]
